FAERS Safety Report 5121323-7 (Version None)
Quarter: 2006Q4

REPORT INFORMATION
  Report Type: 
  Country: None (occurrence: None)
  Receive Date: 20061002
  Receipt Date: 20060920
  Transmission Date: 20070319
  Serious: Yes (Death, Life-Threatening, Hospitalization, Other)
  Sender: FDA-Public Use
  Company Number: 2006095072

PATIENT
  Sex: Female

DRUGS (7)
  1. CABERGOLINE [Suspect]
     Indication: PARKINSON'S DISEASE
     Dosage: 2.5 MG, ORAL
     Route: 048
     Dates: start: 20020101, end: 20060101
  2. CODEINE PHOSPHATE (CODEINE PHOSPHATE) [Concomitant]
  3. PROCYCLIDINE HYDROCHLORIDE 2MG TAB [Concomitant]
  4. OMEPRAZOLE [Concomitant]
  5. DEXAMETHASONE TAB [Concomitant]
  6. ATENOLOL [Concomitant]
  7. BENDROFLUMETHIAZIDE (BENDROFLUMETHIAZIDE) [Concomitant]

REACTIONS (3)
  - DYSPNOEA [None]
  - GASTROINTESTINAL CARCINOMA [None]
  - METASTASES TO LUNG [None]
